FAERS Safety Report 8593287 (Version 2)
Quarter: 2013Q4

REPORT INFORMATION
  Report Type: Spontaneous
  Country: BR (occurrence: BR)
  Receive Date: 20120604
  Receipt Date: 20131025
  Transmission Date: 20140711
  Serious: No
  Sender: FDA-Public Use
  Company Number: BR-JNJFOC-20120521110

PATIENT
  Sex: Male
  Weight: 88 kg

DRUGS (14)
  1. DUROGESIC D-TRANS [Suspect]
     Indication: ANALGESIC THERAPY
     Route: 062
  2. DUROGESIC D-TRANS [Suspect]
     Indication: ANALGESIC THERAPY
     Dosage: 50 UG/HR + 25 UG/HR + 12.5 UG/HR
     Route: 062
  3. DUROGESIC D-TRANS [Suspect]
     Indication: ANALGESIC THERAPY
     Dosage: 50 UG/HR + 25 UG/HR
     Route: 062
  4. DUROGESIC D-TRANS [Suspect]
     Indication: ANALGESIC THERAPY
     Route: 062
     Dates: start: 2012
  5. METHADONE [Concomitant]
     Indication: ANALGESIC THERAPY
     Route: 065
  6. LYRICA [Concomitant]
     Route: 065
  7. DOLAMIN FLEX [Concomitant]
     Indication: MIGRAINE
     Route: 065
  8. PROCIMAX [Concomitant]
     Indication: ANTIDEPRESSANT THERAPY
     Route: 065
  9. FELDENE [Concomitant]
     Indication: MIGRAINE
     Route: 065
  10. SUMAX (SUMATRIPTAN) [Concomitant]
     Indication: MIGRAINE
     Route: 065
  11. TYLEX [Concomitant]
     Indication: PAIN
     Route: 065
  12. RIVOTRIL [Concomitant]
     Route: 065
  13. DRAMIN [Concomitant]
     Indication: NAUSEA
     Route: 065
  14. LACTULOSE [Concomitant]
     Indication: CONSTIPATION
     Route: 065

REACTIONS (10)
  - Therapeutic response decreased [Unknown]
  - Pain [Not Recovered/Not Resolved]
  - Treatment noncompliance [Unknown]
  - Malaise [Unknown]
  - Anxiety [Unknown]
  - Asthenia [Unknown]
  - Dizziness [Unknown]
  - Depression [Unknown]
  - Medication error [Unknown]
  - Inappropriate schedule of drug administration [Unknown]
